FAERS Safety Report 9303369 (Version 1)
Quarter: 2013Q2

REPORT INFORMATION
  Report Type: Spontaneous
  Country: US (occurrence: US)
  Receive Date: 20130522
  Receipt Date: 20130522
  Transmission Date: 20140414
  Serious: No
  Sender: FDA-Public Use
  Company Number: US-PFIZER INC-2013153407

PATIENT
  Sex: Female

DRUGS (1)
  1. PREMARIN [Suspect]
     Dosage: UNK, 2X/WEEK
     Route: 067
     Dates: start: 201302

REACTIONS (5)
  - Urinary incontinence [Unknown]
  - Therapeutic response unexpected [Unknown]
  - Vulvovaginal burning sensation [Unknown]
  - Vulvovaginal dryness [Unknown]
  - Hair texture abnormal [Unknown]
